FAERS Safety Report 4297200-0 (Version None)
Quarter: 2004Q1

REPORT INFORMATION
  Report Type: 
  Country: None (occurrence: None)
  Receive Date: 20040218
  Receipt Date: 20040129
  Transmission Date: 20041129
  Serious: Yes (Death, Hospitalization)
  Sender: FDA-Public Use
  Company Number: PHBS2004BR01498

PATIENT
  Sex: Male

DRUGS (1)
  1. GLEEVEC [Suspect]
     Indication: GASTROINTESTINAL STROMAL TUMOUR
     Dosage: 400 MG/D
     Route: 048

REACTIONS (8)
  - ATRIOVENTRICULAR BLOCK COMPLETE [None]
  - BRONCHOPNEUMONIA [None]
  - CARDIAC PACEMAKER INSERTION [None]
  - COMA [None]
  - FACE OEDEMA [None]
  - FALL [None]
  - SYNCOPE [None]
  - TRAUMATIC BRAIN INJURY [None]
